FAERS Safety Report 22230940 (Version 1)
Quarter: 2023Q2

REPORT INFORMATION
  Report Type: Spontaneous
  Country: RU (occurrence: None)
  Receive Date: 20230420
  Receipt Date: 20230420
  Transmission Date: 20230722
  Serious: Yes (Other)
  Sender: FDA-Public Use
  Company Number: RU-ROCHE-3331929

PATIENT
  Age: 58 Year
  Sex: Female

DRUGS (7)
  1. OBINUTUZUMAB [Suspect]
     Active Substance: OBINUTUZUMAB
     Indication: Follicular lymphoma
     Dosage: CYCLE 1 DAYS 1, 8, 15, DAY 1 OF SUBSEQUENT CYCLE
     Route: 042
     Dates: start: 20170529, end: 20171115
  2. RITUXIMAB [Suspect]
     Active Substance: RITUXIMAB
     Indication: Follicular lymphoma
     Route: 065
  3. BENDAMUSTINE [Suspect]
     Active Substance: BENDAMUSTINE
     Indication: Product used for unknown indication
     Dosage: ON 2, 3 DAYS, MONOTHERAPY 120MG/M2
     Route: 041
     Dates: start: 20170529, end: 20171115
  4. CYCLOPHOSPHAMIDE [Suspect]
     Active Substance: CYCLOPHOSPHAMIDE
     Indication: Product used for unknown indication
     Dosage: 9 CYCLES
     Route: 065
     Dates: start: 201604, end: 201612
  5. DOXORUBICIN [Suspect]
     Active Substance: DOXORUBICIN
     Indication: Product used for unknown indication
     Dosage: 9 CYCLES
     Route: 065
     Dates: start: 201604, end: 201612
  6. VINCRISTINE [Suspect]
     Active Substance: VINCRISTINE
     Indication: Product used for unknown indication
     Dosage: 9 CYCLES
     Route: 065
     Dates: start: 201604, end: 201612
  7. PREDNISONE [Suspect]
     Active Substance: PREDNISONE
     Indication: Product used for unknown indication
     Route: 065
     Dates: start: 201604, end: 201612

REACTIONS (8)
  - Pneumonia [Unknown]
  - Pneumonia [Unknown]
  - Follicular lymphoma [Unknown]
  - Osteosclerosis [Unknown]
  - Cough [Unknown]
  - Asthenia [Unknown]
  - Oropharyngeal pain [Unknown]
  - Pyrexia [Unknown]

NARRATIVE: CASE EVENT DATE: 20180501
